FAERS Safety Report 22055539 (Version 1)
Quarter: 2023Q1

REPORT INFORMATION
  Report Type: Spontaneous
  Country: MX (occurrence: MX)
  Receive Date: 20230302
  Receipt Date: 20230302
  Transmission Date: 20230417
  Serious: Yes (Other)
  Sender: FDA-Public Use
  Company Number: MX-GUERBET / JUAMA S.A. DE C.V-MX-20230003

PATIENT
  Age: 68 Year
  Sex: Female
  Weight: 60 kg

DRUGS (1)
  1. OPTIRAY 320 [Suspect]
     Active Substance: IOVERSOL
     Indication: Computerised tomogram
     Route: 042
     Dates: start: 20230202, end: 20230202

REACTIONS (4)
  - Swelling face [Recovered/Resolved]
  - Erythema [Recovered/Resolved]
  - Respiratory distress [Recovered/Resolved]
  - Nausea [Recovered/Resolved]

NARRATIVE: CASE EVENT DATE: 20230203
